FAERS Safety Report 18285526 (Version 3)
Quarter: 2020Q4

REPORT INFORMATION
  Report Type: Report from Study
  Country: None (occurrence: CO)
  Receive Date: 20200919
  Receipt Date: 20201026
  Transmission Date: 20210113
  Serious: Yes (Other)
  Sender: FDA-Public Use
  Company Number: CO-ABBVIE-20K-036-3573888-00

PATIENT
  Age: 57 Year
  Sex: Male
  Weight: 58 kg

DRUGS (2)
  1. HUMIRA [Suspect]
     Active Substance: ADALIMUMAB
     Indication: CROHN^S DISEASE
     Route: 058
     Dates: end: 20200820
  2. HUMIRA [Suspect]
     Active Substance: ADALIMUMAB
     Indication: CROHN^S DISEASE
     Route: 058
     Dates: start: 20091212

REACTIONS (3)
  - Diarrhoea [Recovering/Resolving]
  - Lithiasis [Recovered/Resolved]
  - Investigation abnormal [Unknown]

NARRATIVE: CASE EVENT DATE: 2020
